FAERS Safety Report 5842712-9 (Version None)
Quarter: 2008Q3

REPORT INFORMATION
  Report Type: 
  Country: None (occurrence: None)
  Receive Date: 20080808
  Receipt Date: 20080729
  Transmission Date: 20090109
  Serious: Yes (Hospitalization)
  Sender: FDA-Public Use
  Company Number: 440014J08USA

PATIENT
  Age: 49 Year
  Sex: Female
  Weight: 76.2043 kg

DRUGS (5)
  1. ZORBTIVE [Suspect]
     Indication: SHORT-BOWEL SYNDROME
     Dosage: 7 MG, 1 IN 1 DAYS, SUBCUTANEOUS
     Route: 058
     Dates: start: 20080701
  2. IMODIUM [Concomitant]
  3. GLUTAMINE (LEVOGLUTAMIDE) [Concomitant]
  4. PREVACID [Concomitant]
  5. SCOPOLAMINE (HYOSCINE/ 00008701/) [Concomitant]

REACTIONS (4)
  - CATHETER RELATED INFECTION [None]
  - NAUSEA [None]
  - PYREXIA [None]
  - WHITE BLOOD CELL COUNT DECREASED [None]
